FAERS Safety Report 6531152-5 (Version None)
Quarter: 2010Q1

REPORT INFORMATION
  Report Type: 
  Country: None (occurrence: None)
  Receive Date: 20100108
  Receipt Date: 20091231
  Transmission Date: 20100710
  Serious: Yes (Death)
  Sender: FDA-Public Use
  Company Number: US-AMGEN-QUU381333

PATIENT
  Sex: Female

DRUGS (11)
  1. ENBREL [Suspect]
     Indication: PSORIASIS
     Route: 058
     Dates: start: 20090301
  2. EFFEXOR [Concomitant]
  3. PRILOSEC [Concomitant]
  4. TRICOR [Concomitant]
  5. ASPIRIN [Concomitant]
  6. ATENOLOL [Concomitant]
  7. LIPITOR [Concomitant]
  8. PLAVIX [Concomitant]
  9. NUVARING [Concomitant]
  10. MULTIPLE VITAMINS [Concomitant]
  11. HERBAL SUPPLEMENT [Concomitant]

REACTIONS (1)
  - MYOCARDIAL INFARCTION [None]
